FAERS Safety Report 20514044 (Version 1)
Quarter: 2022Q1

REPORT INFORMATION
  Report Type: Spontaneous
  Country: US (occurrence: US)
  Receive Date: 20220224
  Receipt Date: 20220224
  Transmission Date: 20220423
  Serious: No
  Sender: FDA-Public Use
  Company Number: US-AMNEAL PHARMACEUTICALS-2021-AMRX-02604

PATIENT
  Sex: Male

DRUGS (10)
  1. RYTARY [Suspect]
     Active Substance: CARBIDOPA\LEVODOPA
     Indication: Product used for unknown indication
     Dosage: 48.75-195MG, 3 CAPSULES, 3 /DAY, 1 HOUR BEFORE MEAL
     Route: 048
     Dates: end: 20210111
  2. RYTARY [Suspect]
     Active Substance: CARBIDOPA\LEVODOPA
     Dosage: 48.75-195MG, 3 CAPSULES, 3 /DAY, 1 HOUR BEFORE MEAL
     Route: 048
     Dates: start: 2021, end: 2021
  3. RYTARY [Suspect]
     Active Substance: CARBIDOPA\LEVODOPA
     Dosage: 36.25-145MG, 1 CAPSULES, 3X/DAY FOR 3 WEEK
     Route: 048
     Dates: start: 20210629, end: 2021
  4. RYTARY [Suspect]
     Active Substance: CARBIDOPA\LEVODOPA
     Dosage: 48.75-195MG, 2 CAPSULES, 3X/DAY FOR A WEEK
     Route: 048
     Dates: start: 20210629, end: 2021
  5. RYTARY [Suspect]
     Active Substance: CARBIDOPA\LEVODOPA
     Dosage: 48.75-195 MG, 2 CAPSULES TWICE IN DAY
     Route: 048
     Dates: start: 2021
  6. RYTARY [Suspect]
     Active Substance: CARBIDOPA\LEVODOPA
     Dosage: 48.75-195 MG, 2 CAPSULE 4 TIMES A DAY
     Route: 048
     Dates: start: 20210927, end: 2021
  7. RYTARY [Suspect]
     Active Substance: CARBIDOPA\LEVODOPA
     Dosage: 36.25-145 MG, 1 CAPSULE 4 TIMES A DAY
     Route: 048
     Dates: start: 20210927
  8. RYTARY [Suspect]
     Active Substance: CARBIDOPA\LEVODOPA
     Dosage: 48.75-195 MG, 1 CAPSULES, 4X/DAY
     Route: 048
     Dates: start: 2021
  9. RYTARY [Suspect]
     Active Substance: CARBIDOPA\LEVODOPA
     Dosage: 48.75-195 MG, 2 CAPSULES, 4X/DAY
     Route: 048
     Dates: end: 20220105
  10. RYTARY [Suspect]
     Active Substance: CARBIDOPA\LEVODOPA
     Dosage: 48.75-195 MG, 2 CAPSULES, 5X/DAY
     Route: 048
     Dates: start: 20220106

REACTIONS (2)
  - Weight increased [Unknown]
  - Inappropriate schedule of product administration [Unknown]
